FAERS Safety Report 6043037-1 (Version None)
Quarter: 2009Q1

REPORT INFORMATION
  Report Type: 
  Country: None (occurrence: None)
  Receive Date: 20090119
  Receipt Date: 20090112
  Transmission Date: 20090719
  Serious: Yes (Hospitalization)
  Sender: FDA-Public Use
  Company Number: PHHO2009AU00693

PATIENT
  Sex: Male
  Weight: 79.75 kg

DRUGS (3)
  1. CERTICAN [Suspect]
     Indication: RENAL TRANSPLANT
     Dosage: 3 MG, DAILY
     Route: 048
     Dates: start: 20090101
  2. NEORAL [Suspect]
     Indication: RENAL TRANSPLANT
  3. ENOXAPARIN SODIUM [Concomitant]
     Indication: ANTICOAGULANT THERAPY

REACTIONS (8)
  - BLOOD PRESSURE INCREASED [None]
  - DRUG LEVEL INCREASED [None]
  - HAEMATURIA [None]
  - HAEMORRHAGE URINARY TRACT [None]
  - POST PROCEDURAL COMPLICATION [None]
  - URETERIC OBSTRUCTION [None]
  - URINE OUTPUT DECREASED [None]
  - WEIGHT INCREASED [None]
